FAERS Safety Report 6702610-5 (Version None)
Quarter: 2010Q2

REPORT INFORMATION
  Report Type: 
  Country: None (occurrence: None)
  Receive Date: 20100429
  Receipt Date: 20100420
  Transmission Date: 20101027
  Serious: Yes (Death, Hospitalization, Other)
  Sender: FDA-Public Use
  Company Number: US-BAXTER-2010BH007696

PATIENT
  Age: 44 Year
  Sex: Male

DRUGS (4)
  1. DIANEAL [Suspect]
     Indication: PERITONEAL DIALYSIS
     Route: 033
     Dates: end: 20100301
  2. DIANEAL [Suspect]
     Route: 033
     Dates: end: 20100301
  3. DIANEAL [Suspect]
     Indication: PERITONEAL DIALYSIS
     Route: 033
     Dates: end: 20100301
  4. DIANEAL [Suspect]
     Route: 033
     Dates: end: 20100301

REACTIONS (3)
  - GANGRENE [None]
  - PERITONEAL CLOUDY EFFLUENT [None]
  - SEPSIS [None]
